FAERS Safety Report 11937975 (Version 1)
Quarter: 2016Q1

REPORT INFORMATION
  Report Type: Spontaneous
  Country: US (occurrence: None)
  Receive Date: 20160120
  Receipt Date: 20160120
  Transmission Date: 20160526
  Serious: Yes (Death)
  Sender: FDA-Public Use
  Company Number: None

PATIENT
  Age: 95 Year
  Sex: Male

DRUGS (1)
  1. LUPRON DEPOT [Suspect]
     Active Substance: LEUPROLIDE ACETATE
     Indication: PROSTATE CANCER
     Dosage: 22.5MG EVERY 3 MONTHS INTRAMUSCULAR
     Route: 030
     Dates: start: 20151007, end: 20151217

REACTIONS (1)
  - Death [None]

NARRATIVE: CASE EVENT DATE: 20151217
